FAERS Safety Report 4346321-2 (Version None)
Quarter: 2004Q2

REPORT INFORMATION
  Report Type: 
  Country: None (occurrence: None)
  Receive Date: 20040423
  Receipt Date: 20040423
  Transmission Date: 20050107
  Serious: Yes (Other)
  Sender: FDA-Public Use
  Company Number: None

PATIENT
  Age: 33 Year
  Sex: Male
  Weight: 72.5755 kg

DRUGS (4)
  1. ABILIFY [Suspect]
     Indication: BIPOLAR DISORDER
     Dosage: 20 MG Q HS
     Dates: start: 20040206
  2. LEVOXYL [Concomitant]
  3. PROZAC [Concomitant]
  4. NORTIPYLINE [Concomitant]

REACTIONS (2)
  - DYSPHAGIA [None]
  - ODYNOPHAGIA [None]
